FAERS Safety Report 12786126 (Version 1)
Quarter: 2016Q3

REPORT INFORMATION
  Report Type: Spontaneous
  Country: US (occurrence: US)
  Receive Date: 20160927
  Receipt Date: 20160927
  Transmission Date: 20161109
  Serious: Yes (Other)
  Sender: FDA-Public Use
  Company Number: US-PFIZER INC-2016443228

PATIENT
  Age: 57 Year
  Sex: Male
  Weight: 79 kg

DRUGS (1)
  1. GENOTROPIN MQ [Suspect]
     Active Substance: SOMATROPIN
     Indication: GROWTH HORMONE DEFICIENCY
     Dosage: 0.4 MG, DAILY
     Route: 058

REACTIONS (7)
  - Depression [Recovering/Resolving]
  - Malaise [Unknown]
  - Muscle atrophy [Unknown]
  - Asthenia [Unknown]
  - Fatigue [Unknown]
  - Weight decreased [Unknown]
  - Fall [Unknown]
